FAERS Safety Report 5258377-3 (Version None)
Quarter: 2007Q1

REPORT INFORMATION
  Report Type: 
  Country: None (occurrence: None)
  Receive Date: 20070306
  Receipt Date: 20070306
  Transmission Date: 20070707
  Serious: Yes (Life-Threatening, Other)
  Sender: FDA-Public Use
  Company Number: None

PATIENT
  Age: 22 Year
  Sex: Male
  Weight: 74.8435 kg

DRUGS (2)
  1. EMSAM [Suspect]
     Indication: ANXIETY
     Dosage: 9MG EVERY 24 HRS TRANSDERMAL
     Route: 062
     Dates: start: 20070301
  2. EMSAM [Suspect]
     Indication: ATTENTION DEFICIT/HYPERACTIVITY DISORDER
     Dosage: 9MG EVERY 24 HRS TRANSDERMAL
     Route: 062
     Dates: start: 20070301

REACTIONS (8)
  - ANXIETY [None]
  - FEELING ABNORMAL [None]
  - HYPERTENSION [None]
  - IMPULSIVE BEHAVIOUR [None]
  - INSOMNIA [None]
  - IRRITABILITY [None]
  - MANIA [None]
  - PANIC ATTACK [None]
